FAERS Safety Report 4389148-8 (Version None)
Quarter: 2004Q3

REPORT INFORMATION
  Report Type: 
  Country: None (occurrence: None)
  Receive Date: 20040701
  Receipt Date: 20040701
  Transmission Date: 20050211
  Serious: Yes (Other)
  Sender: FDA-Public Use
  Company Number: None

PATIENT
  Sex: Male
  Weight: 63.7 kg

DRUGS (2)
  1. GATIFLOXACIN [Suspect]
     Indication: PNEUMONIA
     Dosage: 400 MG IV X 1
     Route: 042
     Dates: start: 20040207
  2. ANTIHYPERTENSIVES [Concomitant]

REACTIONS (1)
  - HYPOTENSION [None]
